FAERS Safety Report 14702924 (Version 1)
Quarter: 2018Q2

REPORT INFORMATION
  Report Type: Spontaneous
  Country: ES (occurrence: ES)
  Receive Date: 20180402
  Receipt Date: 20180402
  Transmission Date: 20180711
  Serious: Yes (Other)
  Sender: FDA-Public Use
  Company Number: ES-SUN PHARMACEUTICAL INDUSTRIES LTD-2018RR-168739

PATIENT
  Age: 49 Year
  Sex: Male

DRUGS (2)
  1. PARACETAMOL [Suspect]
     Active Substance: ACETAMINOPHEN
     Indication: CATARRH
     Dosage: 650 MG, TID
     Route: 048
     Dates: start: 20180206, end: 20180213
  2. PRAVAFENIX 40 MG/160 MG CAPSULAS DURAS 30 CAPSULAS [Concomitant]
     Indication: HYPERTRIGLYCERIDAEMIA
     Dosage: 1 COMP, 1 VEZ AL DIA
     Route: 048
     Dates: start: 20151109

REACTIONS (2)
  - Hypocoagulable state [Recovered/Resolved]
  - Hepatitis [Recovered/Resolved]

NARRATIVE: CASE EVENT DATE: 20180213
